FAERS Safety Report 6706110-8 (Version None)
Quarter: 2010Q2

REPORT INFORMATION
  Report Type: 
  Country: None (occurrence: None)
  Receive Date: 20100503
  Receipt Date: 20100423
  Transmission Date: 20101027
  Serious: Yes (Hospitalization)
  Sender: FDA-Public Use
  Company Number: ES-JNJFOC-20100406998

PATIENT
  Sex: Male

DRUGS (2)
  1. REMICADE [Suspect]
     Indication: PSORIATIC ARTHROPATHY
     Dosage: 3 INFUSIONS ON UNSPECIFIED DATES
     Route: 042
  2. METHOTREXATE [Concomitant]

REACTIONS (3)
  - INFUSION RELATED REACTION [None]
  - LUNG INFILTRATION [None]
  - PNEUMONITIS [None]
